FAERS Safety Report 8567109-2 (Version None)
Quarter: 2012Q3

REPORT INFORMATION
  Report Type: 
  Country: None (occurrence: None)
  Receive Date: 20120803
  Receipt Date: 20111205
  Transmission Date: 20120928
  Serious: No
  Sender: FDA-Public Use
  Company Number: US-ABBOTT-11P-163-0880548-00

PATIENT
  Sex: Female
  Weight: 99.88 kg

DRUGS (22)
  1. DPT [Concomitant]
     Indication: PRODUCT USED FOR UNKNOWN INDICATION
  2. ATENOLOL [Concomitant]
     Indication: PRODUCT USED FOR UNKNOWN INDICATION
  3. HUMALOG [Concomitant]
     Indication: PRODUCT USED FOR UNKNOWN INDICATION
  4. NIASPAN [Suspect]
     Indication: PRODUCT USED FOR UNKNOWN INDICATION
     Dosage: AT BEDTIME
     Dates: start: 20111001, end: 20111101
  5. INFLUENZA VACCINE [Concomitant]
     Indication: IMMUNISATION
     Route: 030
     Dates: start: 20111119, end: 20111119
  6. ALBUTEROL [Concomitant]
     Indication: PRODUCT USED FOR UNKNOWN INDICATION
     Route: 055
  7. GLIPIZIDE [Concomitant]
     Indication: PRODUCT USED FOR UNKNOWN INDICATION
  8. VESICARE [Concomitant]
     Indication: BLADDER DISORDER
     Dosage: NOT REPORTED
     Dates: start: 20111001
  9. COQ10 [Concomitant]
     Indication: PRODUCT USED FOR UNKNOWN INDICATION
  10. SIMVASTATIN [Concomitant]
     Indication: PRODUCT USED FOR UNKNOWN INDICATION
  11. POTASSIUM [Concomitant]
     Indication: PRODUCT USED FOR UNKNOWN INDICATION
  12. LASIX [Concomitant]
     Indication: PRODUCT USED FOR UNKNOWN INDICATION
  13. LANTUS [Concomitant]
     Indication: PRODUCT USED FOR UNKNOWN INDICATION
     Dosage: AT BEDTIME
  14. SPIRIVA [Concomitant]
     Indication: PRODUCT USED FOR UNKNOWN INDICATION
     Route: 055
  15. ASPIRIN [Concomitant]
     Indication: PRODUCT USED FOR UNKNOWN INDICATION
  16. COUMADIN [Concomitant]
     Indication: PRODUCT USED FOR UNKNOWN INDICATION
  17. VITAMIN B-12 [Concomitant]
     Indication: PRODUCT USED FOR UNKNOWN INDICATION
     Dosage: MONTHLY
  18. ACCUPRIL [Concomitant]
     Indication: PRODUCT USED FOR UNKNOWN INDICATION
  19. LOVAZA [Concomitant]
     Indication: PRODUCT USED FOR UNKNOWN INDICATION
  20. CHOLESTYRAMINE [Concomitant]
     Indication: PRODUCT USED FOR UNKNOWN INDICATION
  21. PRILOSEC [Concomitant]
     Indication: PRODUCT USED FOR UNKNOWN INDICATION
  22. VITAMIN D [Concomitant]
     Indication: PRODUCT USED FOR UNKNOWN INDICATION

REACTIONS (3)
  - FLUSHING [None]
  - BLOOD GLUCOSE INCREASED [None]
  - SKIN BURNING SENSATION [None]
